FAERS Safety Report 12715409 (Version 3)
Quarter: 2016Q4

REPORT INFORMATION
  Report Type: Report from Study
  Country: US (occurrence: US)
  Receive Date: 20160906
  Receipt Date: 20161026
  Transmission Date: 20170207
  Serious: Yes (Other)
  Sender: FDA-Public Use
  Company Number: US-CIPLA LTD.-2016US17777

PATIENT

DRUGS (8)
  1. PLACEBO [Suspect]
     Active Substance: UNSPECIFIED INGREDIENT
     Dosage: UNK
     Route: 065
  2. LO-OGESTRIL [Concomitant]
     Indication: CONTRACEPTION
     Dosage: 1 EACH, QD
     Route: 048
     Dates: start: 201602
  3. ALBUTEROL. [Concomitant]
     Active Substance: ALBUTEROL
     Indication: ASTHMA
     Dosage: 180 MCG, LESS THEN 3X WEEKLY, PRN
     Dates: start: 1999, end: 20161008
  4. METHACHOLINE. [Suspect]
     Active Substance: METHACHOLINE
     Indication: PULMONARY FUNCTION CHALLENGE TEST
     Dosage: UNK
     Route: 065
     Dates: start: 20160810
  5. BLINDED ALBUTEROL SULPHATE [Suspect]
     Active Substance: ALBUTEROL SULFATE
     Dosage: UNK, VISIT 2
     Route: 065
     Dates: start: 20160816
  6. ZYRTEC [Concomitant]
     Active Substance: CETIRIZINE HYDROCHLORIDE
     Indication: SEASONAL ALLERGY
     Dosage: 10 MG, PRN - AS NEEDED, PT WILL WITH HOLD FOR 72 HOURS PRIOR TO VISIT
     Route: 048
     Dates: start: 1996
  7. IBUPROFEN. [Concomitant]
     Active Substance: IBUPROFEN
     Indication: HEADACHE
     Dosage: 400 MG, LESS THEN 2X MONTHLY
     Route: 048
     Dates: start: 2006
  8. VENTOLIN [Concomitant]
     Active Substance: ALBUTEROL SULFATE
     Indication: ASTHMA
     Dosage: 180 MCG, LESS THEN 3X WEEKLY, PRN
     Dates: start: 20161008

REACTIONS (3)
  - Pregnancy test positive [Not Recovered/Not Resolved]
  - Exposure during pregnancy [Unknown]
  - Bronchospasm [Recovered/Resolved]

NARRATIVE: CASE EVENT DATE: 20160810
